FAERS Safety Report 4752033-3 (Version None)
Quarter: 2005Q3

REPORT INFORMATION
  Report Type: 
  Country: None (occurrence: None)
  Receive Date: 20050822
  Receipt Date: 20050531
  Transmission Date: 20060218
  Serious: No
  Sender: FDA-Public Use
  Company Number: PHEH2005US06072

PATIENT
  Age: 38 Year
  Sex: Female

DRUGS (5)
  1. ZELNORM [Suspect]
     Indication: IMPAIRED GASTRIC EMPTYING
     Dosage: 6 MG, BID, ORAL;   6 MG, TID, ORAL
     Route: 048
     Dates: start: 20050301, end: 20050509
  2. ZELNORM [Suspect]
     Indication: IMPAIRED GASTRIC EMPTYING
     Dosage: 6 MG, BID, ORAL;   6 MG, TID, ORAL
     Route: 048
     Dates: start: 20050510
  3. NEURONTIN [Concomitant]
  4. PREVACID [Concomitant]
  5. REGLAN [Concomitant]

REACTIONS (1)
  - ACNE [None]
